FAERS Safety Report 9540373 (Version 1)
Quarter: 2013Q3

REPORT INFORMATION
  Report Type: Spontaneous
  Country: US (occurrence: US)
  Receive Date: 20130920
  Receipt Date: 20130920
  Transmission Date: 20140515
  Serious: Yes (Other)
  Sender: FDA-Public Use
  Company Number: US-CUBIST PHARMACEUTICAL, INC.-2013CBST000774

PATIENT
  Sex: 0

DRUGS (1)
  1. ENTEREG [Suspect]
     Dosage: 12 MG, Q12H
     Route: 048
     Dates: start: 20130827, end: 20130828

REACTIONS (1)
  - Confusional state [Recovered/Resolved]
